FAERS Safety Report 12912891 (Version 5)
Quarter: 2017Q1

REPORT INFORMATION
  Report Type: Report from Study
  Country: US (occurrence: US)
  Receive Date: 20161104
  Receipt Date: 20170217
  Transmission Date: 20170428
  Serious: Yes (Hospitalization, Other)
  Sender: FDA-Public Use
  Company Number: US-SA-2016SA175406

PATIENT
  Age: 31 Year
  Sex: Female

DRUGS (2)
  1. LEMTRADA [Suspect]
     Active Substance: ALEMTUZUMAB
     Indication: MULTIPLE SCLEROSIS
     Route: 041
     Dates: start: 20170110, end: 20170112
  2. LEMTRADA [Suspect]
     Active Substance: ALEMTUZUMAB
     Indication: MULTIPLE SCLEROSIS
     Route: 041
     Dates: start: 20150831, end: 20150904

REACTIONS (34)
  - Rash [Recovered/Resolved]
  - Hypothyroidism [Not Recovered/Not Resolved]
  - Heart rate increased [Not Recovered/Not Resolved]
  - Malaise [Not Recovered/Not Resolved]
  - Pain [Recovered/Resolved]
  - Eye pain [Unknown]
  - Sinusitis [Unknown]
  - Dyspnoea [Unknown]
  - Visual acuity reduced [Recovered/Resolved]
  - Confusional state [Recovered/Resolved]
  - Urinary tract infection fungal [Unknown]
  - Blood glucose increased [Not Recovered/Not Resolved]
  - Basedow^s disease [Not Recovered/Not Resolved]
  - Thyroid mass [Not Recovered/Not Resolved]
  - Cough [Not Recovered/Not Resolved]
  - Dysstasia [Unknown]
  - Palpitations [Unknown]
  - Feeling abnormal [Unknown]
  - Mental impairment [Recovered/Resolved]
  - Thyroid function test abnormal [Not Recovered/Not Resolved]
  - Thyroid disorder [Unknown]
  - Heart rate increased [Unknown]
  - Multiple sclerosis relapse [Recovered/Resolved]
  - Optic neuritis [Recovered/Resolved]
  - Urinary tract infection bacterial [Unknown]
  - Cyanosis [Unknown]
  - Gait disturbance [Recovered/Resolved]
  - Weight decreased [Not Recovered/Not Resolved]
  - Nausea [Recovered/Resolved]
  - Pallor [Unknown]
  - Headache [Unknown]
  - Haemolytic anaemia [Not Recovered/Not Resolved]
  - Poor venous access [Recovered/Resolved]
  - Dizziness [Unknown]

NARRATIVE: CASE EVENT DATE: 2016
